FAERS Safety Report 5022657-7 (Version None)
Quarter: 2006Q2

REPORT INFORMATION
  Report Type: 
  Country: None (occurrence: None)
  Receive Date: 20060609
  Receipt Date: 20060530
  Transmission Date: 20061013
  Serious: Yes (Hospitalization)
  Sender: FDA-Public Use
  Company Number: BE-ABBOTT-06P-013-0334722-00

PATIENT
  Sex: Male
  Weight: 64 kg

DRUGS (13)
  1. KALETRA [Suspect]
     Indication: HIV INFECTION
     Route: 048
     Dates: start: 20060504, end: 20060522
  2. KALETRA [Suspect]
     Dates: start: 20060529
  3. VIREAD [Suspect]
     Indication: ANTIVIRAL PROPHYLAXIS
     Dates: start: 20060504, end: 20060522
  4. LAMIVUDINE [Concomitant]
     Indication: DRUG USE FOR UNKNOWN INDICATION
     Dates: start: 20060504, end: 20060522
  5. LAMIVUDINE [Concomitant]
     Dates: start: 20060529
  6. DIDANOSINE [Concomitant]
     Indication: DRUG USE FOR UNKNOWN INDICATION
     Dates: start: 20060529
  7. BIPERIDEN HYDROCHLORIDE TAB [Concomitant]
     Indication: DRUG USE FOR UNKNOWN INDICATION
  8. BEFACT FORTE [Concomitant]
     Indication: DRUG USE FOR UNKNOWN INDICATION
  9. ERGENYL CHRONO [Concomitant]
     Indication: DRUG USE FOR UNKNOWN INDICATION
  10. OXYBUTYNIN [Concomitant]
     Indication: DRUG USE FOR UNKNOWN INDICATION
  11. ESOMEPRAZOLE [Concomitant]
     Indication: DRUG USE FOR UNKNOWN INDICATION
  12. OLANZAPINE [Concomitant]
     Indication: DRUG USE FOR UNKNOWN INDICATION
  13. MULTIGAN [Concomitant]
     Indication: PNEUMONIA PNEUMOCOCCAL
     Dates: start: 20060522

REACTIONS (4)
  - FAECAL INCONTINENCE [None]
  - SEBORRHOEIC DERMATITIS [None]
  - TOXIC SKIN ERUPTION [None]
  - URINARY INCONTINENCE [None]
